FAERS Safety Report 21626424 (Version 1)
Quarter: 2022Q4

REPORT INFORMATION
  Report Type: Spontaneous
  Country: US (occurrence: None)
  Receive Date: 20221121
  Receipt Date: 20221121
  Transmission Date: 20230112
  Serious: Yes (Other)
  Sender: FDA-Public Use
  Company Number: None

PATIENT
  Sex: Male

DRUGS (13)
  1. ILARIS [Suspect]
     Active Substance: CANAKINUMAB
     Indication: Rheumatoid arthritis
     Dosage: OTHER QUANTITY : 150 MG/ML;?FREQUENCY : EVERY THREE WEEKS;?
     Route: 058
     Dates: start: 20210812
  2. ILARIS [Suspect]
     Active Substance: CANAKINUMAB
     Dosage: FREQUENCY : EVERY THREE WEEKS;?
     Route: 058
  3. ALBUTEROL [Concomitant]
     Active Substance: ALBUTEROL
  4. CALC ANTACID CHW [Concomitant]
  5. CITALOPRAM [Concomitant]
  6. COLCHICINE [Concomitant]
     Active Substance: COLCHICINE
  7. CYPROHEPTAD [Concomitant]
  8. FAMOTIDINE [Concomitant]
     Active Substance: FAMOTIDINE
  9. FLOVENT HFA AER [Concomitant]
  10. MONTELUKAST CHW [Concomitant]
  11. NAPROXEN [Concomitant]
     Active Substance: NAPROXEN
  12. PREDNISOLONE [Concomitant]
     Active Substance: PREDNISOLONE
  13. VITAMIN D DRO [Concomitant]

REACTIONS (1)
  - Dental operation [None]
